FAERS Safety Report 9451716 (Version 5)
Quarter: 2014Q2

REPORT INFORMATION
  Report Type: Report from Study
  Country: CA (occurrence: CA)
  Receive Date: 20130812
  Receipt Date: 20140402
  Transmission Date: 20141212
  Serious: Yes (Other)
  Sender: FDA-Public Use
  Company Number: CA-ROCHE-1259756

PATIENT
  Age: 68 Year
  Sex: Female
  Weight: 106.6 kg

DRUGS (23)
  1. RITUXAN [Suspect]
     Indication: RHEUMATOID ARTHRITIS
     Dosage: PREVIOUS DOSE WAS ON 20/FEB/2013.
     Route: 042
     Dates: start: 20111208
  2. RITUXAN [Suspect]
     Route: 042
     Dates: end: 20130911
  3. CRESTOR [Suspect]
     Indication: BLOOD CHOLESTEROL INCREASED
     Route: 065
  4. METHOTREXATE [Concomitant]
     Dosage: 10 TABLETS 2.5 MG X 10/WEEK
     Route: 048
  5. CELEBREX [Concomitant]
  6. CLOBETASOL CREAM [Concomitant]
     Route: 067
  7. GLIBENCLAMIDE [Concomitant]
  8. METFORMIN [Concomitant]
  9. OXYBUTYNIN [Concomitant]
  10. PANTOLOC [Concomitant]
     Route: 065
  11. PATANOL [Concomitant]
     Indication: HYPERSENSITIVITY
     Route: 047
  12. TESTOSTERONE [Concomitant]
     Route: 065
  13. DERMABASE [Concomitant]
     Route: 065
  14. VAGIFEM [Concomitant]
     Route: 065
  15. ZOVIRAX [Concomitant]
     Indication: ROSACEA
     Route: 065
  16. PLAQUENIL [Concomitant]
     Route: 065
  17. DIPHENHYDRAMINE HCL [Concomitant]
     Indication: PREMEDICATION
     Route: 048
     Dates: start: 20111208
  18. ACETAMINOPHEN [Concomitant]
     Indication: PREMEDICATION
     Route: 048
     Dates: start: 20111208
  19. FOLIC ACID [Concomitant]
     Route: 065
  20. METHYLPREDNISOLONE [Concomitant]
     Indication: PREMEDICATION
     Route: 042
     Dates: start: 20111207
  21. VESICARE [Concomitant]
  22. ALTACE [Concomitant]
  23. GLYBURIDE [Concomitant]

REACTIONS (14)
  - Hypothyroidism [Unknown]
  - Blood cholesterol increased [Unknown]
  - Atrial fibrillation [Not Recovered/Not Resolved]
  - Cardiac failure congestive [Not Recovered/Not Resolved]
  - Oedema peripheral [Not Recovered/Not Resolved]
  - Lung disorder [Not Recovered/Not Resolved]
  - Injection site extravasation [Unknown]
  - Fatigue [Not Recovered/Not Resolved]
  - Insomnia [Not Recovered/Not Resolved]
  - Paraesthesia [Not Recovered/Not Resolved]
  - Pain [Not Recovered/Not Resolved]
  - Muscle spasms [Not Recovered/Not Resolved]
  - Joint swelling [Not Recovered/Not Resolved]
  - Asthenia [Unknown]
